FAERS Safety Report 6178852-7 (Version None)
Quarter: 2009Q2

REPORT INFORMATION
  Report Type: 
  Country: None (occurrence: None)
  Receive Date: 20090504
  Receipt Date: 20090423
  Transmission Date: 20091009
  Serious: Yes (Life-Threatening)
  Sender: FDA-Public Use
  Company Number: IT-BAXTER-2009BH007351

PATIENT
  Age: 6 Year
  Sex: Female

DRUGS (7)
  1. MESNA [Suspect]
     Indication: BURKITT'S LYMPHOMA
     Route: 042
  2. IFOSFAMIDE [Suspect]
     Indication: BURKITT'S LYMPHOMA
     Route: 042
  3. VINCRISTINE SULFATE [Suspect]
     Indication: BURKITT'S LYMPHOMA
     Route: 042
  4. METHOTREXATE [Suspect]
     Indication: BURKITT'S LYMPHOMA
     Route: 042
  5. DEXAMETHASONE TAB [Suspect]
     Indication: BURKITT'S LYMPHOMA
     Route: 048
  6. CYTARABINE [Suspect]
     Indication: BURKITT'S LYMPHOMA
     Route: 042
  7. ETOPOSIDE [Suspect]
     Indication: BURKITT'S LYMPHOMA
     Route: 042

REACTIONS (1)
  - CONVULSION [None]
